FAERS Safety Report 5728784-0 (Version None)
Quarter: 2008Q2

REPORT INFORMATION
  Report Type: 
  Country: None (occurrence: None)
  Receive Date: 20080506
  Receipt Date: 20080421
  Transmission Date: 20081010
  Serious: Yes (Death, Hospitalization)
  Sender: FDA-Public Use
  Company Number: GR-GENENTECH-255282

PATIENT
  Age: 74 Year
  Sex: Male

DRUGS (1)
  1. RAPTIVA [Suspect]
     Indication: PSORIASIS
     Dosage: UNK, 1/WEEK
     Route: 058
     Dates: start: 20050101, end: 20071201

REACTIONS (2)
  - CARDIAC ARREST [None]
  - DIABETIC COMPLICATION [None]
